FAERS Safety Report 10801663 (Version 1)
Quarter: 2015Q1

REPORT INFORMATION
  Report Type: Report from Study
  Country: CN (occurrence: CN)
  Receive Date: 20150217
  Receipt Date: 20150217
  Transmission Date: 20150721
  Serious: Yes (Death)
  Sender: FDA-Public Use
  Company Number: CN-ROCHE-1491161

PATIENT
  Age: 67 Year
  Sex: Male
  Weight: 53 kg

DRUGS (1)
  1. AVASTIN [Suspect]
     Active Substance: BEVACIZUMAB
     Indication: RECTAL CANCER
     Route: 042
     Dates: start: 20140520

REACTIONS (12)
  - Red blood cell count decreased [Unknown]
  - Hydrothorax [Recovering/Resolving]
  - Dyspnoea [Fatal]
  - Malnutrition [Unknown]
  - Dysuria [Unknown]
  - Pleural effusion [Fatal]
  - Peripheral swelling [Not Recovered/Not Resolved]
  - Urine output decreased [Not Recovered/Not Resolved]
  - Weight decreased [Unknown]
  - White blood cell count decreased [Unknown]
  - Ascites [Recovering/Resolving]
  - Decreased appetite [Not Recovered/Not Resolved]

NARRATIVE: CASE EVENT DATE: 20150113
